FAERS Safety Report 21745707 (Version 1)
Quarter: 2022Q4

REPORT INFORMATION
  Report Type: Spontaneous
  Country: US (occurrence: US)
  Receive Date: 20221219
  Receipt Date: 20221219
  Transmission Date: 20230113
  Serious: No
  Sender: FDA-Public Use
  Company Number: US-009507513-2212USA000027

PATIENT
  Age: 84 Year
  Sex: Male

DRUGS (2)
  1. JANUMET XR [Suspect]
     Active Substance: METFORMIN HYDROCHLORIDE\SITAGLIPTIN PHOSPHATE
     Indication: Diabetes mellitus
     Dosage: STRENGTH: 50/1000 MG/2 TABLETS DAILY/ONCE IN THE MORNING AND AGAIN AT NIGHT WITH HIS MEALS
     Route: 048
     Dates: start: 202105
  2. JARDIANCE [Suspect]
     Active Substance: EMPAGLIFLOZIN
     Indication: Diabetes mellitus
     Dosage: 10 MG/1 TABLET DAILY/AT BREAKFAST
     Route: 048

REACTIONS (7)
  - Drug ineffective [Unknown]
  - Glycosylated haemoglobin increased [Unknown]
  - Eating disorder [Unknown]
  - Blood glucose increased [Unknown]
  - Malaise [Unknown]
  - Fatigue [Unknown]
  - Inappropriate schedule of product administration [Unknown]

NARRATIVE: CASE EVENT DATE: 20210501
